FAERS Safety Report 14980802 (Version 2)
Quarter: 2018Q4

REPORT INFORMATION
  Report Type: Spontaneous
  Country: DE (occurrence: DE)
  Receive Date: 20180606
  Receipt Date: 20181015
  Transmission Date: 20190204
  Serious: Yes (Hospitalization, Other)
  Sender: FDA-Public Use
  Company Number: DE-SHIRE-DE201820563

PATIENT

DRUGS (9)
  1. PANTOPRAZOL [Concomitant]
     Active Substance: PANTOPRAZOLE SODIUM
     Indication: GASTROINTESTINAL DISORDER THERAPY
  2. STELARA [Suspect]
     Active Substance: USTEKINUMAB
     Dosage: 90 MG,
     Route: 058
     Dates: start: 20170622
  3. STELARA [Suspect]
     Active Substance: USTEKINUMAB
     Indication: CROHN^S DISEASE
     Dosage: 45 MG, UNK
     Route: 058
     Dates: start: 20170601
  4. PREDNISOLONE. [Suspect]
     Active Substance: PREDNISOLONE
     Dosage: 20 MG, 1X/DAY:QD
     Route: 048
     Dates: start: 20171214
  5. VIGANTOLETTEN [Concomitant]
     Active Substance: CHOLECALCIFEROL
     Indication: OSTEOPOROSIS PROPHYLAXIS
  6. MESALAZINE [Concomitant]
     Active Substance: MESALAMINE
     Indication: PRODUCT USED FOR UNKNOWN INDICATION
  7. MEZAVANT [Suspect]
     Active Substance: MESALAMINE
     Indication: CROHN^S DISEASE
     Dosage: 3.6 G, 1X/DAY:QD
     Route: 048
     Dates: start: 20170622
  8. PREDNISOLONE. [Suspect]
     Active Substance: PREDNISOLONE
     Indication: CROHN^S DISEASE
     Dosage: 25 MG, 1X/DAY:QD
     Route: 048
     Dates: start: 201503
  9. AZATHIOPRINE. [Concomitant]
     Active Substance: AZATHIOPRINE
     Indication: CROHN^S DISEASE

REACTIONS (2)
  - Proctocolectomy [Recovered/Resolved]
  - Ileostomy [Recovered/Resolved]

NARRATIVE: CASE EVENT DATE: 20180225
